FAERS Safety Report 17893442 (Version 2)
Quarter: 2020Q2

REPORT INFORMATION
  Report Type: Spontaneous
  Country: US (occurrence: US)
  Receive Date: 20200615
  Receipt Date: 20200615
  Transmission Date: 20200714
  Serious: Yes (Hospitalization)
  Sender: FDA-Public Use
  Company Number: US-JNJFOC-20200602567

PATIENT
  Age: 21 Year
  Sex: Female

DRUGS (3)
  1. GABAPENTIN. [Concomitant]
     Active Substance: GABAPENTIN
     Indication: AMPLIFIED MUSCULOSKELETAL PAIN SYNDROME
     Dosage: QD?MOST RECENT DOSE 02/DEC/2019
     Route: 048
     Dates: start: 20180421
  2. MELOXICAM. [Concomitant]
     Active Substance: MELOXICAM
     Indication: JUVENILE IDIOPATHIC ARTHRITIS
     Dosage: QD?MOST RECENT USED: 02/DEC/2019
     Route: 048
     Dates: start: 20190612
  3. TYLENOL [Suspect]
     Active Substance: ACETAMINOPHEN
     Indication: PAIN
     Dosage: (9) 500 MG TABLETS ON 02-DEC-2019 AT ONE TIME AND THEN (10) 500 MG TABLETS IN THE MORNING OF 03-DEC-
     Route: 048
     Dates: start: 20191201, end: 20191204

REACTIONS (1)
  - Accidental overdose [Recovered/Resolved]

NARRATIVE: CASE EVENT DATE: 20191203
